FAERS Safety Report 9361414 (Version 1)
Quarter: 2013Q2

REPORT INFORMATION
  Report Type: Spontaneous
  Country: US (occurrence: US)
  Receive Date: 20130621
  Receipt Date: 20130621
  Transmission Date: 20140414
  Serious: Yes (Other)
  Sender: FDA-Public Use
  Company Number: US-EISAI INC-E7272-00167-SPO-US

PATIENT
  Age: 59 Year
  Sex: Female

DRUGS (13)
  1. ONTAK [Suspect]
     Indication: MYCOSIS FUNGOIDES
     Route: 041
     Dates: start: 200008, end: 200103
  2. TARGRETIN CAPSULES [Suspect]
     Indication: MYCOSIS FUNGOIDES
     Route: 048
  3. TARGRETIN CAPSULES [Suspect]
     Route: 048
  4. TARGRETIN CAPSULES [Suspect]
     Route: 048
  5. TARGRETIN CAPSULES [Suspect]
     Dosage: 300MG - 375MG
     Route: 048
  6. TARGRETIN GEL [Suspect]
     Indication: MYCOSIS FUNGOIDES
     Dosage: UNKNOWN
     Route: 061
  7. ACETAMINOPHEN [Concomitant]
     Indication: PREMEDICATION
     Route: 065
  8. ANTIHISTAMINE [Concomitant]
     Indication: PREMEDICATION
     Route: 065
  9. ATORVASTATIN [Concomitant]
     Indication: PRODUCT USED FOR UNKNOWN INDICATION
     Route: 065
  10. LEVOTHYROID [Concomitant]
     Indication: PRODUCT USED FOR UNKNOWN INDICATION
     Route: 065
  11. INTERFERON ALFA [Concomitant]
     Indication: SKIN LESION
     Route: 065
  12. INTERFERON ALFA [Concomitant]
     Route: 065
  13. INTERFERON ALFA [Concomitant]
     Dosage: UNKNOWN
     Route: 065

REACTIONS (3)
  - Hypothyroidism [Unknown]
  - Hypertriglyceridaemia [Unknown]
  - Myalgia [Unknown]
